FAERS Safety Report 7660050-9 (Version None)
Quarter: 2011Q3

REPORT INFORMATION
  Report Type: 
  Country: None (occurrence: None)
  Receive Date: 20110805
  Receipt Date: 20110804
  Transmission Date: 20111222
  Serious: Yes (Other)
  Sender: FDA-Public Use
  Company Number: US-PFIZER INC-2011178850

PATIENT
  Sex: Female

DRUGS (1)
  1. DILANTIN [Suspect]
     Dosage: UNK
     Route: 048

REACTIONS (4)
  - DRUG ADMINISTRATION ERROR [None]
  - CONVULSION [None]
  - MUSCLE DISORDER [None]
  - SOMNOLENCE [None]
